FAERS Safety Report 15300024 (Version 1)
Quarter: 2018Q3

REPORT INFORMATION
  Report Type: Spontaneous
  Country: US (occurrence: US)
  Receive Date: 20180808
  Receipt Date: 20180808
  Transmission Date: 20181010
  Serious: Yes (Other)
  Sender: FDA-Public Use
  Company Number: None

PATIENT
  Age: 80 Year
  Sex: Female
  Weight: 63.9 kg

DRUGS (17)
  1. GABAPENTIN. [Concomitant]
     Active Substance: GABAPENTIN
  2. REFRESH TEARS [Concomitant]
     Active Substance: CARBOXYMETHYLCELLULOSE SODIUM
  3. ASPIRIN. [Concomitant]
     Active Substance: ASPIRIN
  4. TOPROL XL [Concomitant]
     Active Substance: METOPROLOL SUCCINATE
  5. AMBIEN [Concomitant]
     Active Substance: ZOLPIDEM TARTRATE
  6. OMEPRAZOLE. [Concomitant]
     Active Substance: OMEPRAZOLE
  7. WELCHOL [Concomitant]
     Active Substance: COLESEVELAM HYDROCHLORIDE
  8. ZOCOR [Concomitant]
     Active Substance: SIMVASTATIN
  9. CITRACAL [Concomitant]
     Active Substance: CALCIUM CITRATE
  10. NINLARO [Suspect]
     Active Substance: IXAZOMIB CITRATE
     Indication: PLASMA CELL MYELOMA
     Route: 048
     Dates: start: 20170821
  11. ACYCLOVIR. [Concomitant]
     Active Substance: ACYCLOVIR
  12. ZOMETA [Concomitant]
     Active Substance: ZOLEDRONIC ACID
  13. PRECOSE [Concomitant]
     Active Substance: ACARBOSE
  14. DEXAMETHASONE. [Concomitant]
     Active Substance: DEXAMETHASONE
  15. FOLIC ACID. [Concomitant]
     Active Substance: FOLIC ACID
  16. LISINOPRIL. [Concomitant]
     Active Substance: LISINOPRIL
  17. XANAX [Concomitant]
     Active Substance: ALPRAZOLAM

REACTIONS (2)
  - Nausea [None]
  - Salivary hypersecretion [None]
